FAERS Safety Report 25633026 (Version 1)
Quarter: 2025Q3

REPORT INFORMATION
  Report Type: Spontaneous
  Country: EU (occurrence: EU)
  Receive Date: 20250801
  Receipt Date: 20250801
  Transmission Date: 20251020
  Serious: Yes (Death)
  Sender: TEVA
  Company Number: EU-TEVA-VS-3343886

PATIENT
  Sex: Female

DRUGS (1)
  1. FENTANYL CITRATE [Suspect]
     Active Substance: FENTANYL CITRATE
     Indication: Analgesic therapy
     Route: 060

REACTIONS (3)
  - Death [Fatal]
  - Drug ineffective [Unknown]
  - Product solubility abnormal [Unknown]
